FAERS Safety Report 7989269-4 (Version None)
Quarter: 2011Q4

REPORT INFORMATION
  Report Type: 
  Country: None (occurrence: None)
  Receive Date: 20111216
  Receipt Date: 20111216
  Transmission Date: 20120403
  Serious: Yes (Hospitalization)
  Sender: FDA-Public Use
  Company Number: None

PATIENT
  Sex: Male
  Weight: 87.3 kg

DRUGS (2)
  1. CARBOPLATIN [Suspect]
     Dosage: 286 MG
  2. TAXOL [Suspect]
     Dosage: 93 MG

REACTIONS (5)
  - HYPOXIA [None]
  - DYSPNOEA [None]
  - ANAEMIA [None]
  - PRODUCTIVE COUGH [None]
  - PNEUMONIA [None]
